FAERS Safety Report 25073048 (Version 3)
Quarter: 2025Q2

REPORT INFORMATION
  Report Type: Spontaneous
  Country: US (occurrence: US)
  Receive Date: 20250313
  Receipt Date: 20250627
  Transmission Date: 20250717
  Serious: No
  Sender: LUPIN
  Company Number: US-LUPIN PHARMACEUTICALS INC.-2025-00488

PATIENT

DRUGS (1)
  1. ALBUTEROL SULFATE [Suspect]
     Active Substance: ALBUTEROL SULFATE
     Indication: Respiratory tract infection

REACTIONS (9)
  - Oropharyngeal pain [Unknown]
  - Dyspnoea [Unknown]
  - Illness [Unknown]
  - Drug dose omission by device [Unknown]
  - Product use in unapproved indication [Unknown]
  - Device leakage [Unknown]
  - Device issue [Unknown]
  - Device use error [Unknown]
  - Device physical property issue [Unknown]
